FAERS Safety Report 9607263 (Version 2)
Quarter: 2013Q4

REPORT INFORMATION
  Report Type: Report from Study
  Country: JP (occurrence: JP)
  Receive Date: 20131009
  Receipt Date: 20131009
  Transmission Date: 20140711
  Serious: Yes (Death, Hospitalization)
  Sender: FDA-Public Use
  Company Number: JP-009507513-1201USA00104

PATIENT
  Age: 62 Year
  Sex: Male

DRUGS (5)
  1. ZOLINZA CAPSULES 100MG [Suspect]
     Indication: ADULT T-CELL LYMPHOMA/LEUKAEMIA
     Dosage: 400 MG, QD
     Route: 048
     Dates: start: 20111004, end: 20111016
  2. ZOLINZA CAPSULES 100MG [Suspect]
     Dosage: 400 MG, QD
     Route: 048
     Dates: start: 20111115, end: 20111127
  3. ADRIACIN [Suspect]
     Indication: ADULT T-CELL LYMPHOMA/LEUKAEMIA
     Dosage: 17 MG, QD
     Route: 042
     Dates: start: 20111012, end: 20111015
  4. ONCOVIN [Suspect]
     Indication: ADULT T-CELL LYMPHOMA/LEUKAEMIA
     Dosage: 0.7 MG, QD
     Route: 042
     Dates: start: 20111012, end: 20111015
  5. VEPESID [Suspect]
     Indication: ADULT T-CELL LYMPHOMA/LEUKAEMIA
     Dosage: 86 MG, QD
     Route: 042
     Dates: start: 20111012, end: 20111015

REACTIONS (5)
  - Adult T-cell lymphoma/leukaemia [Fatal]
  - Platelet count decreased [Recovering/Resolving]
  - Jaundice [Not Recovered/Not Resolved]
  - Blood lactate dehydrogenase increased [Not Recovered/Not Resolved]
  - Blood creatinine increased [Unknown]
